FAERS Safety Report 4397245-6 (Version None)
Quarter: 2004Q3

REPORT INFORMATION
  Report Type: 
  Country: None (occurrence: None)
  Receive Date: 20040714
  Receipt Date: 20040706
  Transmission Date: 20050211
  Serious: Yes (Hospitalization)
  Sender: FDA-Public Use
  Company Number: US-MERCK-0407USA00468

PATIENT
  Age: 57 Year
  Sex: Female

DRUGS (2)
  1. FOSAMAX [Suspect]
     Indication: OSTEOPENIA
     Route: 048
  2. FOSAMAX [Suspect]
     Route: 048

REACTIONS (6)
  - CHEST DISCOMFORT [None]
  - CHEST PAIN [None]
  - DRUG INEFFECTIVE [None]
  - HYSTERECTOMY [None]
  - NAUSEA [None]
  - UTERINE DISORDER [None]
